FAERS Safety Report 8122826-3 (Version None)
Quarter: 2012Q1

REPORT INFORMATION
  Report Type: 
  Country: None (occurrence: None)
  Receive Date: 20120208
  Receipt Date: 20120202
  Transmission Date: 20120608
  Serious: Yes (Disabling)
  Sender: FDA-Public Use
  Company Number: US-PFIZER INC-2012029984

PATIENT
  Sex: Female

DRUGS (4)
  1. PEGINTERFERON ALFA-2B [Suspect]
     Dosage: UNK
  2. RIBAVIRIN [Suspect]
     Dosage: UNK
  3. NEURONTIN [Suspect]
     Dosage: 900 MG, UNK
  4. BOCEPREVIR [Suspect]
     Indication: HEPATITIS C
     Dosage: 800 MG, 3X/DAY
     Route: 048

REACTIONS (2)
  - PAIN IN EXTREMITY [None]
  - EPISTAXIS [None]
